FAERS Safety Report 4665420-9 (Version None)
Quarter: 2005Q2

REPORT INFORMATION
  Report Type: 
  Country: None (occurrence: None)
  Receive Date: 20050518
  Receipt Date: 20050518
  Transmission Date: 20051028
  Serious: Yes (Hospitalization)
  Sender: FDA-Public Use
  Company Number: None

PATIENT
  Sex: Male

DRUGS (9)
  1. AMANTADINE 100 MG [Suspect]
     Indication: INFLUENZA
     Dosage: 100 MG DAILY ORAL
     Route: 048
     Dates: start: 20050111, end: 20050116
  2. AMANTADINE 100 MG [Suspect]
     Indication: PROPHYLAXIS
     Dosage: 100 MG DAILY ORAL
     Route: 048
     Dates: start: 20050111, end: 20050116
  3. CITALOPRAM [Concomitant]
  4. PHENYTOIN [Concomitant]
  5. METFORMIN HCL [Concomitant]
  6. CLOPIDOGREL BISULFATE [Concomitant]
  7. LISINOPRIL [Concomitant]
  8. GLYBURIDE [Concomitant]
  9. SIMVASTATIN [Concomitant]

REACTIONS (1)
  - CONVULSION [None]
